FAERS Safety Report 8843375 (Version 2)
Quarter: 2012Q4

REPORT INFORMATION
  Report Type: 
  Country: ZA (occurrence: ZA)
  Receive Date: 20121016
  Receipt Date: 20121018
  Transmission Date: 20130627
  Serious: Yes (Other)
  Sender: FDA-Public Use
  Company Number: ZA-PFIZER INC-2012256028

PATIENT
  Age: 55 Year
  Sex: Female

DRUGS (7)
  1. LYRICA [Suspect]
     Indication: HEADACHE
     Dosage: 50 mg, 1x/day (nocte)
     Route: 048
     Dates: start: 20121003, end: 20121011
  2. CIPRAMIL [Concomitant]
  3. RIVOTRIL [Concomitant]
  4. TREPILINE [Concomitant]
  5. SEREVENT [Concomitant]
  6. NASONEX [Concomitant]
  7. PREMARIN [Concomitant]

REACTIONS (8)
  - Arthritis [Recovered/Resolved]
  - Oedema peripheral [Recovered/Resolved]
  - Pain in extremity [Recovered/Resolved]
  - Back pain [Unknown]
  - Musculoskeletal pain [Unknown]
  - Joint swelling [Recovered/Resolved]
  - Erythema [Recovered/Resolved]
  - Off label use [Recovered/Resolved]
